FAERS Safety Report 7115358-2 (Version None)
Quarter: 2010Q4

REPORT INFORMATION
  Report Type: 
  Country: None (occurrence: None)
  Receive Date: 20101116
  Receipt Date: 20101116
  Transmission Date: 20110411
  Serious: Yes (Other)
  Sender: FDA-Public Use
  Company Number: None

PATIENT
  Sex: Male
  Weight: 83.9154 kg

DRUGS (3)
  1. OXYCONTIN [Suspect]
     Indication: INTERVERTEBRAL DISC PROTRUSION
  2. OXYCONTIN [Suspect]
     Indication: PERIPHERAL NERVE INJURY
  3. OXYCONTIN [Suspect]
     Indication: SPINAL COLUMN STENOSIS

REACTIONS (7)
  - ABDOMINAL PAIN [None]
  - CONSTIPATION [None]
  - DIZZINESS [None]
  - INADEQUATE ANALGESIA [None]
  - NAUSEA [None]
  - PALPITATIONS [None]
  - PRODUCT FORMULATION ISSUE [None]
